FAERS Safety Report 7816585-9 (Version None)
Quarter: 2011Q4

REPORT INFORMATION
  Report Type: 
  Country: None (occurrence: None)
  Receive Date: 20111017
  Receipt Date: 20110131
  Transmission Date: 20120403
  Serious: No
  Sender: FDA-Public Use
  Company Number: US-BAYER-2011-012150

PATIENT
  Sex: Male

DRUGS (8)
  1. METHADONE HCL [Concomitant]
  2. METHADONE HCL [Concomitant]
  3. FLANAX [Concomitant]
  4. NEXAVAR [Suspect]
     Dosage: 200 MG, BID
     Route: 048
  5. METHADONE HCL [Concomitant]
  6. METHADONE HCL [Concomitant]
  7. REGLAN [Concomitant]
  8. COMPAZINE [Concomitant]

REACTIONS (1)
  - PALMAR-PLANTAR ERYTHRODYSAESTHESIA SYNDROME [None]
